FAERS Safety Report 8371152-6 (Version None)
Quarter: 2012Q2

REPORT INFORMATION
  Report Type: 
  Country: None (occurrence: None)
  Receive Date: 20120518
  Receipt Date: 20120504
  Transmission Date: 20120825
  Serious: Yes (Hospitalization)
  Sender: FDA-Public Use
  Company Number: US-WATSON-2012-07815

PATIENT
  Age: 62 Year
  Sex: Male

DRUGS (1)
  1. ANDRODERM [Suspect]
     Indication: PRODUCT USED FOR UNKNOWN INDICATION
     Dosage: UNK
     Route: 062
     Dates: start: 20100101

REACTIONS (7)
  - PERIPHERAL EMBOLISM [None]
  - JOINT SWELLING [None]
  - ARTHRALGIA [None]
  - PULMONARY THROMBOSIS [None]
  - OEDEMA PERIPHERAL [None]
  - PULMONARY EMBOLISM [None]
  - PAIN IN EXTREMITY [None]
